FAERS Safety Report 6178052-0 (Version None)
Quarter: 2009Q2

REPORT INFORMATION
  Report Type: 
  Country: None (occurrence: None)
  Receive Date: 20090504
  Receipt Date: 20090424
  Transmission Date: 20091009
  Serious: Yes (Hospitalization)
  Sender: FDA-Public Use
  Company Number: GB-AMGEN-QUU344251

PATIENT
  Age: 35 Year
  Sex: Male
  Weight: 76 kg

DRUGS (8)
  1. NEULASTA [Suspect]
     Indication: NEUTROPENIA
     Route: 058
     Dates: start: 20090319, end: 20090319
  2. ACYCLOVIR [Concomitant]
     Route: 048
     Dates: start: 20090315, end: 20090327
  3. ALLOPURINOL [Concomitant]
     Route: 048
     Dates: start: 20090314, end: 20090326
  4. COLISTIN SULFATE [Concomitant]
     Route: 048
     Dates: start: 20090315, end: 20090327
  5. DEXAMETHASONE TAB [Concomitant]
     Route: 048
     Dates: start: 20090402
  6. ENOXAPARIN SODIUM [Concomitant]
     Route: 058
     Dates: start: 20090303, end: 20090326
  7. FLUCONAZOLE [Concomitant]
     Route: 048
     Dates: start: 20090315, end: 20090327
  8. LANSOPRAZOLE [Concomitant]
     Route: 048
     Dates: start: 20090304

REACTIONS (1)
  - ALANINE AMINOTRANSFERASE INCREASED [None]
